FAERS Safety Report 24198498 (Version 1)
Quarter: 2024Q3

REPORT INFORMATION
  Report Type: Spontaneous
  Country: FR (occurrence: FR)
  Receive Date: 20240812
  Receipt Date: 20240812
  Transmission Date: 20241016
  Serious: Yes (Hospitalization, Other)
  Sender: AUROBINDO
  Company Number: FR-AFSSAPS-BX2024001550

PATIENT
  Age: 78 Year
  Sex: Female

DRUGS (3)
  1. LIDOCAINE [Suspect]
     Active Substance: LIDOCAINE
     Indication: Anaesthesia
     Dosage: 800 MILLIGRAM (1 TOTAL)
     Route: 042
     Dates: start: 20240717, end: 20240717
  2. NITROGEN [Suspect]
     Active Substance: NITROGEN
     Indication: Anaesthesia
     Dosage: UNK
     Dates: start: 20240717, end: 20240717
  3. OXYGEN [Suspect]
     Active Substance: OXYGEN
     Indication: Anaesthesia
     Dosage: UNK
     Dates: start: 20240717, end: 20240717

REACTIONS (4)
  - Electrocardiogram QT prolonged [Not Recovered/Not Resolved]
  - Hypertension [Recovered/Resolved]
  - Confusional state [Recovered/Resolved]
  - Prescribed overdose [Recovered/Resolved]

NARRATIVE: CASE EVENT DATE: 20240717
